FAERS Safety Report 5375506-1 (Version None)
Quarter: 2007Q2

REPORT INFORMATION
  Report Type: 
  Country: None (occurrence: None)
  Receive Date: 20070629
  Receipt Date: 20070621
  Transmission Date: 20071010
  Serious: Yes (Other)
  Sender: FDA-Public Use
  Company Number: IL-RB-006995-07

PATIENT
  Sex: Male

DRUGS (2)
  1. SUBUTEX [Suspect]
     Dosage: DOSAGE AND FREQUENCY IS UNKNOWN
     Route: 065
  2. SUBUTEX [Suspect]
     Dosage: DOSAGE AND FREQUENCY IS UNKNOWN
     Route: 065

REACTIONS (2)
  - CONVULSION [None]
  - LOSS OF CONSCIOUSNESS [None]
